FAERS Safety Report 14146148 (Version 10)
Quarter: 2025Q2

REPORT INFORMATION
  Report Type: Spontaneous
  Country: GB (occurrence: GB)
  Receive Date: 20171031
  Receipt Date: 20250516
  Transmission Date: 20250717
  Serious: Yes (Disabling, Congenital Anomaly, Other)
  Sender: ABBVIE
  Company Number: GB-ABBVIE-17P-167-2146039-00

PATIENT
  Sex: Female

DRUGS (2)
  1. EPILIM [Suspect]
     Active Substance: VALPROATE SODIUM
     Indication: Maternal exposure timing unspecified
     Route: 064
  2. EPILIM [Suspect]
     Active Substance: VALPROATE SODIUM
     Indication: Maternal exposure timing unspecified
     Route: 064

REACTIONS (30)
  - Asthma [Unknown]
  - Lower respiratory tract infection [Unknown]
  - Congenital anomaly [Unknown]
  - Foetal anticonvulsant syndrome [Unknown]
  - Hypermobility syndrome [Unknown]
  - Cerebral palsy [Unknown]
  - Dyspraxia [Unknown]
  - Heart disease congenital [Unknown]
  - Dysmorphism [Unknown]
  - Talipes [Unknown]
  - Speech disorder developmental [Unknown]
  - Autism spectrum disorder [Unknown]
  - Deafness [Unknown]
  - Mobility decreased [Unknown]
  - Epilepsy [Unknown]
  - Language disorder [Unknown]
  - Illness [Unknown]
  - Sensory processing disorder [Unknown]
  - Hyperacusis [Unknown]
  - Foetal exposure during pregnancy [Unknown]
  - Crying [Unknown]
  - Incontinence [Unknown]
  - Somnolence [Unknown]
  - Ear disorder [Unknown]
  - Nasal disorder [Unknown]
  - Pharyngeal disorder [Unknown]
  - Social problem [Unknown]
  - Mental disability [Unknown]
  - Physical disability [Unknown]
  - Learning disability [Unknown]
